FAERS Safety Report 9736482 (Version 2)
Quarter: 2013Q4

REPORT INFORMATION
  Report Type: Spontaneous
  Country: US (occurrence: US)
  Receive Date: 20131206
  Receipt Date: 20131206
  Transmission Date: 20140711
  Serious: No
  Sender: FDA-Public Use
  Company Number: US-009507513-0704USA01068

PATIENT
  Sex: Female

DRUGS (2)
  1. EMEND [Suspect]
     Indication: PROCEDURAL VOMITING
     Dosage: 40 MG, QD
     Route: 048
  2. EMEND [Suspect]
     Indication: PROCEDURAL NAUSEA

REACTIONS (2)
  - Constipation [Recovering/Resolving]
  - Intentional drug misuse [Unknown]
